FAERS Safety Report 5823674-7 (Version None)
Quarter: 2008Q3

REPORT INFORMATION
  Report Type: 
  Country: None (occurrence: None)
  Receive Date: 20080725
  Receipt Date: 20080714
  Transmission Date: 20090109
  Serious: Yes (Hospitalization, Other)
  Sender: FDA-Public Use
  Company Number: US-PFIZER INC-2008040482

PATIENT
  Sex: Male

DRUGS (2)
  1. BEXTRA [Suspect]
     Indication: PAIN MANAGEMENT
     Route: 048
     Dates: start: 20040809, end: 20041122
  2. BEXTRA [Suspect]
     Indication: ARTHRITIS

REACTIONS (4)
  - ABDOMINAL HERNIA [None]
  - CARDIAC DISORDER [None]
  - INTESTINAL FUNCTIONAL DISORDER [None]
  - RASH VESICULAR [None]
